FAERS Safety Report 17657159 (Version 1)
Quarter: 2020Q2

REPORT INFORMATION
  Report Type: Spontaneous
  Country: US (occurrence: US)
  Receive Date: 20200410
  Receipt Date: 20200410
  Transmission Date: 20200713
  Serious: Yes (Hospitalization)
  Sender: FDA-Public Use
  Company Number: US-BIOVITRUM-2020US1570

PATIENT
  Age: 15 Year
  Sex: Male

DRUGS (4)
  1. MICAFUNGIN. [Concomitant]
     Active Substance: MICAFUNGIN SODIUM
  2. GAMIFANT [Suspect]
     Active Substance: EMAPALUMAB-LZSG
     Indication: HAEMOPHAGOCYTIC LYMPHOHISTIOCYTOSIS
     Dates: start: 20200320
  3. GAMIFANT [Suspect]
     Active Substance: EMAPALUMAB-LZSG
     Dates: start: 20200323
  4. GAMIFANT [Suspect]
     Active Substance: EMAPALUMAB-LZSG
     Dates: start: 20200325

REACTIONS (7)
  - Rash maculo-papular [Unknown]
  - Tachypnoea [Unknown]
  - Pain in extremity [Unknown]
  - Arthralgia [Unknown]
  - Pain [Unknown]
  - Pyrexia [Unknown]
  - Chills [Unknown]

NARRATIVE: CASE EVENT DATE: 20200320
